FAERS Safety Report 9344774 (Version 1)
Quarter: 2013Q2

REPORT INFORMATION
  Report Type: Spontaneous
  Country: US (occurrence: US)
  Receive Date: 20130612
  Receipt Date: 20130612
  Transmission Date: 20140414
  Serious: No
  Sender: FDA-Public Use
  Company Number: US-PFIZER INC-2013174444

PATIENT
  Age: 45 Year
  Sex: Female

DRUGS (8)
  1. CELEBREX [Suspect]
     Dosage: UNK
  2. MORPHINE SULFATE [Suspect]
     Dosage: UNK
  3. AUGMENTIN [Suspect]
     Dosage: UNK
  4. LORTAB ELIXIR [Suspect]
     Dosage: UNK
  5. VIOXX [Suspect]
     Dosage: UNK
  6. RELAFEN [Suspect]
     Dosage: UNK
  7. ASPIRIN [Suspect]
     Dosage: UNK
  8. MAGIC MOUTHWASH [Suspect]
     Dosage: UNK

REACTIONS (1)
  - Drug hypersensitivity [Unknown]
